FAERS Safety Report 9087713 (Version 1)
Quarter: 2013Q1

REPORT INFORMATION
  Report Type: Spontaneous
  Country: GB (occurrence: GB)
  Receive Date: 20130201
  Receipt Date: 20130201
  Transmission Date: 20140127
  Serious: Yes (Hospitalization)
  Sender: FDA-Public Use
  Company Number: PHHY2013GB007300

PATIENT
  Age: 90 Year
  Sex: Female

DRUGS (1)
  1. GALANTAMINE [Suspect]
     Indication: COGNITIVE DISORDER
     Dosage: 16 MG, QD
     Route: 048

REACTIONS (4)
  - Hepatitis [Recovering/Resolving]
  - Abdominal tenderness [Unknown]
  - Alanine aminotransferase increased [Unknown]
  - Abdominal pain upper [Unknown]
